FAERS Safety Report 15413700 (Version 11)
Quarter: 2021Q4

REPORT INFORMATION
  Report Type: Report from Study
  Country: CZ (occurrence: CZ)
  Receive Date: 20180921
  Receipt Date: 20211021
  Transmission Date: 20220303
  Serious: Yes (Hospitalization)
  Sender: FDA-Public Use
  Company Number: CZ-EISAI MEDICAL RESEARCH-EC-2018-045186

PATIENT
  Age: 73 Year
  Sex: Male
  Weight: 77.4 kg

DRUGS (24)
  1. LENVATINIB [Suspect]
     Active Substance: LENVATINIB
     Indication: Clear cell renal cell carcinoma
     Route: 048
     Dates: start: 20180814, end: 20180820
  2. LENVATINIB [Suspect]
     Active Substance: LENVATINIB
     Route: 048
     Dates: start: 20180830, end: 20180914
  3. LENVATINIB [Suspect]
     Active Substance: LENVATINIB
     Route: 048
     Dates: start: 20180920, end: 20181111
  4. LENVATINIB [Suspect]
     Active Substance: LENVATINIB
     Route: 048
     Dates: start: 20181116, end: 20181209
  5. LENVATINIB [Suspect]
     Active Substance: LENVATINIB
     Route: 048
     Dates: start: 20181220, end: 20190401
  6. LENVATINIB [Suspect]
     Active Substance: LENVATINIB
     Route: 048
     Dates: start: 20190404, end: 20191030
  7. EVEROLIMUS [Suspect]
     Active Substance: EVEROLIMUS
     Indication: Clear cell renal cell carcinoma
     Route: 048
     Dates: start: 20180814, end: 20180820
  8. EVEROLIMUS [Suspect]
     Active Substance: EVEROLIMUS
     Route: 048
     Dates: start: 20180830, end: 20180914
  9. EVEROLIMUS [Suspect]
     Active Substance: EVEROLIMUS
     Route: 048
     Dates: start: 20180920, end: 20181111
  10. EVEROLIMUS [Suspect]
     Active Substance: EVEROLIMUS
     Route: 048
     Dates: start: 20181116, end: 20181209
  11. EVEROLIMUS [Suspect]
     Active Substance: EVEROLIMUS
     Route: 048
     Dates: start: 20181220, end: 20190401
  12. EVEROLIMUS [Suspect]
     Active Substance: EVEROLIMUS
     Route: 048
     Dates: start: 20190404, end: 20191030
  13. EVEROLIMUS [Suspect]
     Active Substance: EVEROLIMUS
     Route: 048
     Dates: start: 20191118, end: 20201202
  14. EVEROLIMUS [Suspect]
     Active Substance: EVEROLIMUS
     Route: 048
     Dates: start: 20210104
  15. KYLOTAN [Concomitant]
  16. RILMENIDINE [Concomitant]
     Active Substance: RILMENIDINE
  17. NEBIVOLOL [Concomitant]
     Active Substance: NEBIVOLOL
  18. RHEFLUIN [Concomitant]
  19. THEOPHYLLINUM [Concomitant]
  20. PURINOL [Concomitant]
  21. LINAGLIPTIN [Concomitant]
     Active Substance: LINAGLIPTIN
  22. FINASTERIDE [Concomitant]
     Active Substance: FINASTERIDE
  23. ASPIRIN [Concomitant]
     Active Substance: ASPIRIN
  24. FENTANYLUM [Concomitant]

REACTIONS (6)
  - Decreased appetite [Recovered/Resolved]
  - Dehydration [Recovered/Resolved]
  - Fatigue [Recovered/Resolved]
  - Abdominal pain [Recovered/Resolved]
  - Pneumonitis [Recovered/Resolved]
  - Pharyngitis [Recovered/Resolved]

NARRATIVE: CASE EVENT DATE: 20180913
